FAERS Safety Report 9879638 (Version 2)
Quarter: 2014Q1

REPORT INFORMATION
  Report Type: Spontaneous
  Country: IT (occurrence: IT)
  Receive Date: 20140206
  Receipt Date: 20140210
  Transmission Date: 20141002
  Serious: Yes (Hospitalization)
  Sender: FDA-Public Use
  Company Number: IT-TEVA-458848ISR

PATIENT
  Age: 90 Year
  Sex: Female
  Weight: 65 kg

DRUGS (4)
  1. TICLOPIDINE HYDROCHLORIDE [Suspect]
     Indication: PROPHYLAXIS
     Dosage: 1 DF DAILY
     Route: 048
     Dates: start: 20100101, end: 20131105
  2. RYTMONORM - 150 MG COMPRESSE RIVESTITE [Concomitant]
     Indication: PRODUCT USED FOR UNKNOWN INDICATION
     Dosage: 2 DF
     Route: 048
  3. HIZAAR - 50/12,5 MG COMPRESSE RIVESTITE [Concomitant]
     Indication: HYPERTENSION
     Dosage: .5 DF :50MG LOSARTAN / 12.5MG HYDROCHLOROTHIAZIDE
     Route: 048
  4. SIMVASTATIN [Concomitant]
     Indication: HYPERCHOLESTEROLAEMIA
     Dosage: 20 MG
     Route: 048

REACTIONS (2)
  - Periorbital haematoma [Recovering/Resolving]
  - Subdural haemorrhage [Recovering/Resolving]
